FAERS Safety Report 13559210 (Version 1)
Quarter: 2017Q2

REPORT INFORMATION
  Report Type: Spontaneous
  Country: TW (occurrence: TW)
  Receive Date: 20170518
  Receipt Date: 20170518
  Transmission Date: 20170830
  Serious: Yes (Other)
  Sender: FDA-Public Use
  Company Number: TW-LUPIN PHARMACEUTICALS INC.-2017-00286

PATIENT
  Age: 69 Year
  Sex: Female

DRUGS (4)
  1. PAROXETINE. [Suspect]
     Active Substance: PAROXETINE
     Indication: DEPRESSION
  2. QUETIAPINE. [Suspect]
     Active Substance: QUETIAPINE
     Indication: DEPRESSION
  3. PAROXETINE. [Suspect]
     Active Substance: PAROXETINE
     Indication: PSYCHOTIC DISORDER
     Dosage: UNK UNK,UNK,UNKNOWN
     Route: 065
  4. QUETIAPINE. [Suspect]
     Active Substance: QUETIAPINE
     Indication: PSYCHOTIC DISORDER
     Dosage: AT NIGHT
     Route: 065

REACTIONS (4)
  - Extrapyramidal disorder [Unknown]
  - Drug withdrawal syndrome [Unknown]
  - Delirium [Unknown]
  - Major depression [Unknown]
